FAERS Safety Report 18594387 (Version 1)
Quarter: 2020Q4

REPORT INFORMATION
  Report Type: Spontaneous
  Country: ES (occurrence: ES)
  Receive Date: 20201209
  Receipt Date: 20201209
  Transmission Date: 20210114
  Serious: Yes (Hospitalization)
  Sender: FDA-Public Use
  Company Number: ES-UCBSA-2020049276

PATIENT
  Age: 37 Year
  Sex: Male

DRUGS (2)
  1. CIMZIA [Suspect]
     Active Substance: CERTOLIZUMAB PEGOL
     Indication: AXIAL SPONDYLOARTHRITIS
     Dosage: 200 MILLIGRAM, EV 2 WEEKS(QOW)
     Route: 051
     Dates: start: 20170112, end: 20200923
  2. TREMFYA [Suspect]
     Active Substance: GUSELKUMAB
     Indication: CROHN^S DISEASE
     Dosage: 100 MG / 56 DAYS
     Route: 058
     Dates: start: 20191016, end: 20200923

REACTIONS (1)
  - Seminoma [Recovered/Resolved with Sequelae]

NARRATIVE: CASE EVENT DATE: 20200915
